FAERS Safety Report 8461098 (Version 3)
Quarter: 2012Q4

REPORT INFORMATION
  Report Type: 
  Country: US (occurrence: US)
  Receive Date: 20120315
  Receipt Date: 20121026
  Transmission Date: 20130627
  Serious: Yes (Hospitalization)
  Sender: FDA-Public Use
  Company Number: US-ACTELION-A-US2007-14736

PATIENT
  Age: 77 Year
  Sex: Female

DRUGS (3)
  1. TRACLEER [Suspect]
     Indication: PULMONARY ARTERIAL HYPERTENSION
     Dosage: UNK
     Route: 048
     Dates: start: 20060918
  2. LASIX [Concomitant]
  3. OXYGEN [Concomitant]

REACTIONS (13)
  - Cardiac disorder [Recovering/Resolving]
  - Fluid retention [Recovering/Resolving]
  - Influenza [Unknown]
  - Heart rate irregular [Unknown]
  - Dyspnoea [Unknown]
  - Headache [Unknown]
  - Oedema peripheral [Unknown]
  - Palpitations [Unknown]
  - Oedema [Unknown]
  - Skin ulcer [None]
  - Impaired healing [None]
  - Oedema peripheral [None]
  - Drug administration error [None]
